FAERS Safety Report 18230698 (Version 2)
Quarter: 2020Q3

REPORT INFORMATION
  Report Type: Spontaneous
  Country: US (occurrence: US)
  Receive Date: 20200903
  Receipt Date: 20200918
  Transmission Date: 20201103
  Serious: Yes (Other)
  Sender: FDA-Public Use
  Company Number: US-PRINSTON PHARMACEUTICAL INC.-2020PRN00294

PATIENT
  Age: 57 Year
  Weight: 102.04 kg

DRUGS (11)
  1. LISINOPRIL. [Suspect]
     Active Substance: LISINOPRIL
     Dosage: 5 MG, 1X/DAY
  2. PANTOPRAZOLE [Suspect]
     Active Substance: PANTOPRAZOLE
     Dosage: 40 MG, 1X/DAY
  3. AMIODARONE [Suspect]
     Active Substance: AMIODARONE
     Dosage: 200 MG, 2X/DAY
  4. LIPITOR [Suspect]
     Active Substance: ATORVASTATIN CALCIUM
     Dosage: UNK
  5. ELIQUIS [Suspect]
     Active Substance: APIXABAN
     Dosage: 5 MG, 2X/DAY
  6. METOPROLOL. [Suspect]
     Active Substance: METOPROLOL
     Dosage: 100 MG, 1X/DAY AT BEDTIME
  7. AMIODARONE [Suspect]
     Active Substance: AMIODARONE
     Dosage: 200 MG, 3X/DAY
  8. ATORVASTATIN [Suspect]
     Active Substance: ATORVASTATIN
     Dosage: 20 MG, 1X/DAY
  9. TORSEMIDE. [Suspect]
     Active Substance: TORSEMIDE
     Dosage: 20 MG, 1X/DAY
  10. LORAZEPAM. [Suspect]
     Active Substance: LORAZEPAM
     Dosage: 0.5 MG, 3X/DAY (EVERY 8 HOURS)
  11. DIGOXIN. [Suspect]
     Active Substance: DIGOXIN
     Dosage: 125 MG, 1X/DAY

REACTIONS (10)
  - Dyspnoea [Not Recovered/Not Resolved]
  - Dehydration [Not Recovered/Not Resolved]
  - Performance status decreased [Not Recovered/Not Resolved]
  - Stress [Not Recovered/Not Resolved]
  - Cardiovascular disorder [Not Recovered/Not Resolved]
  - Cardiac resynchronisation therapy [Not Recovered/Not Resolved]
  - Gastric ulcer [Not Recovered/Not Resolved]
  - Presyncope [Not Recovered/Not Resolved]
  - Insomnia [Not Recovered/Not Resolved]
  - Unevaluable event [Unknown]

NARRATIVE: CASE EVENT DATE: 2020
